FAERS Safety Report 5503284-1 (Version None)
Quarter: 2007Q4

REPORT INFORMATION
  Report Type: 
  Country: None (occurrence: None)
  Receive Date: 20071031
  Receipt Date: 20071029
  Transmission Date: 20080405
  Serious: Yes (Life-Threatening)
  Sender: FDA-Public Use
  Company Number: DE-ROXANE LABORATORIES, INC-2007-DE-04484DE

PATIENT
  Sex: Female

DRUGS (10)
  1. BUSCOPAN [Suspect]
     Route: 048
  2. CYMBALTA [Suspect]
     Route: 048
  3. DICLO [Suspect]
     Route: 048
  4. DOCITON [Suspect]
     Route: 048
  5. ACETAMINOPHEN [Suspect]
     Route: 048
  6. PROMETHAZINE [Suspect]
     Route: 048
  7. CARBAMAZEPINE [Suspect]
     Route: 048
  8. TRIMIPRAMINE MALEATE [Suspect]
     Route: 048
  9. ZOP [Suspect]
     Route: 048
  10. DIAZEPAM [Suspect]
     Route: 048

REACTIONS (7)
  - ASPIRATION [None]
  - COMA [None]
  - DRUG ABUSER [None]
  - HYPOTENSION [None]
  - OVERDOSE [None]
  - POLYURIA [None]
  - SUICIDE ATTEMPT [None]
